FAERS Safety Report 4546281-5 (Version None)
Quarter: 2005Q1

REPORT INFORMATION
  Report Type: 
  Country: None (occurrence: None)
  Receive Date: 20050106
  Receipt Date: 20041029
  Transmission Date: 20050727
  Serious: Yes (Other)
  Sender: FDA-Public Use
  Company Number: US-GLAXOSMITHKLINE-A0531928A

PATIENT
  Age: 70 Year
  Sex: Female
  Weight: 74.5 kg

DRUGS (6)
  1. NICORETTE (MINT) [Suspect]
     Indication: SMOKING CESSATION THERAPY
     Dates: start: 20020101
  2. ACCOLATE [Concomitant]
     Route: 048
  3. LIPITOR [Concomitant]
     Route: 048
  4. LEXAPRO [Concomitant]
     Route: 048
  5. ADVAIR DISKUS 100/50 [Concomitant]
     Route: 055
  6. PROVENTIL [Concomitant]
     Route: 055

REACTIONS (1)
  - LIVER FUNCTION TEST ABNORMAL [None]
